FAERS Safety Report 10842590 (Version 1)
Quarter: 2015Q1

REPORT INFORMATION
  Report Type: Report from Study
  Country: US (occurrence: US)
  Receive Date: 20150220
  Receipt Date: 20150220
  Transmission Date: 20150721
  Serious: No
  Sender: FDA-Public Use
  Company Number: US-ABBVIE-14P-163-1273668-00

PATIENT
  Age: 42 Year
  Sex: Female

DRUGS (3)
  1. HUMIRA [Suspect]
     Active Substance: ADALIMUMAB
     Indication: COLITIS ULCERATIVE
     Dates: start: 20140629, end: 20140629
  2. HUMIRA [Suspect]
     Active Substance: ADALIMUMAB
     Dates: start: 20140713, end: 20140713
  3. HUMIRA [Suspect]
     Active Substance: ADALIMUMAB
     Dates: start: 20140727

REACTIONS (5)
  - Defaecation urgency [Not Recovered/Not Resolved]
  - Gastrointestinal pain [Unknown]
  - Feeling abnormal [Unknown]
  - Fatigue [Unknown]
  - Influenza like illness [Unknown]

NARRATIVE: CASE EVENT DATE: 2014
